FAERS Safety Report 4569163-1 (Version None)
Quarter: 2005Q1

REPORT INFORMATION
  Report Type: 
  Country: None (occurrence: None)
  Receive Date: 20050203
  Receipt Date: 20041029
  Transmission Date: 20050727
  Serious: Yes (Hospitalization, Other)
  Sender: FDA-Public Use
  Company Number: US-AMGEN-US097519

PATIENT
  Sex: Male
  Weight: 72.6 kg

DRUGS (4)
  1. PROCRIT [Suspect]
     Indication: RENAL FAILURE CHRONIC
     Route: 058
     Dates: start: 20030326, end: 20041012
  2. PREDNISONE [Concomitant]
  3. COUMADIN [Concomitant]
  4. LUPRON [Concomitant]

REACTIONS (10)
  - APLASIA PURE RED CELL [None]
  - ASCITES [None]
  - LEUKOCYTOSIS [None]
  - MARROW HYPERPLASIA [None]
  - NORMOCHROMIC NORMOCYTIC ANAEMIA [None]
  - PALLOR [None]
  - PARVOVIRUS B19 SEROLOGY POSITIVE [None]
  - RETICULOCYTOPENIA [None]
  - TACHYCARDIA [None]
  - THERAPEUTIC RESPONSE DECREASED [None]
